FAERS Safety Report 15428609 (Version 2)
Quarter: 2018Q4

REPORT INFORMATION
  Report Type: Spontaneous
  Country: US (occurrence: US)
  Receive Date: 20180926
  Receipt Date: 20181019
  Transmission Date: 20190204
  Serious: Yes (Other)
  Sender: FDA-Public Use
  Company Number: US-009507513-1809USA008556

PATIENT
  Age: 19 Year
  Sex: Female
  Weight: 66.67 kg

DRUGS (3)
  1. NEXPLANON [Suspect]
     Active Substance: ETONOGESTREL
     Dosage: 68 MG, Q36 MONTHS
     Route: 059
     Dates: start: 20180925, end: 20181012
  2. NEXPLANON [Suspect]
     Active Substance: ETONOGESTREL
     Dosage: 68 MG, Q36 MONTHS
     Route: 059
     Dates: start: 20180925, end: 20180925
  3. NEXPLANON [Suspect]
     Active Substance: ETONOGESTREL
     Indication: CONTRACEPTION
     Dosage: 68 MG, Q36 MONTHS
     Route: 059
     Dates: end: 20180925

REACTIONS (6)
  - Device difficult to use [Recovered/Resolved with Sequelae]
  - Implant site fibrosis [Unknown]
  - Menstruation irregular [Unknown]
  - Product quality issue [Unknown]
  - Complication of device insertion [Recovered/Resolved with Sequelae]
  - Device dislocation [Recovered/Resolved with Sequelae]

NARRATIVE: CASE EVENT DATE: 20180918
